FAERS Safety Report 8409536-X (Version None)
Quarter: 2012Q2

REPORT INFORMATION
  Report Type: 
  Country: None (occurrence: None)
  Receive Date: 20120323
  Receipt Date: 20110128
  Transmission Date: 20120825
  Serious: Yes (Other)
  Sender: FDA-Public Use
  Company Number: 163-21880-11010325

PATIENT
  Age: 68 Year
  Sex: Female
  Weight: 64.6376 kg

DRUGS (1)
  1. REVLIMID [Suspect]
     Indication: CHRONIC LYMPHOCYTIC LEUKAEMIA
     Dosage: 10 MG, QD, PO
     Route: 048
     Dates: start: 20101228, end: 20101229

REACTIONS (3)
  - CHRONIC LYMPHOCYTIC LEUKAEMIA [None]
  - SPLENOMEGALY [None]
  - RETROPERITONEAL LYMPHADENOPATHY [None]
